FAERS Safety Report 7611268-2 (Version None)
Quarter: 2011Q3

REPORT INFORMATION
  Report Type: 
  Country: None (occurrence: None)
  Receive Date: 20110715
  Receipt Date: 20110705
  Transmission Date: 20111222
  Serious: Yes (Hospitalization)
  Sender: FDA-Public Use
  Company Number: FR-PFIZER INC-2011139432

PATIENT
  Age: 56 Year
  Sex: Male
  Weight: 90 kg

DRUGS (10)
  1. FLUOROURACIL [Suspect]
     Dosage: 2020 MG, TOTAL DOSE
     Route: 042
     Dates: start: 20100301
  2. IRINOTECAN HCL [Suspect]
     Indication: GASTRIC CANCER
     Dosage: 360 MG, CYCLIC
     Route: 042
     Dates: start: 20091228
  3. IRINOTECAN HCL [Suspect]
     Dosage: 288 MG, CYCLIC
     Route: 042
     Dates: start: 20100215
  4. FLUOROURACIL [Suspect]
     Dosage: 4800 MG, CYCLIC
     Route: 041
     Dates: start: 20091228
  5. LEUCOVORIN CALCIUM [Suspect]
     Dosage: 640 MG, CYCLIC
     Route: 042
     Dates: start: 20100215
  6. FLUOROURACIL [Suspect]
     Dosage: 3840 MG, CYCLIC
     Route: 041
     Dates: start: 20100215
  7. FLUOROURACIL [Suspect]
     Indication: GASTRIC CANCER
     Dosage: 800 MG, CYCLIC
     Route: 040
     Dates: start: 20091228
  8. FLUOROURACIL [Suspect]
     Dosage: 640 MG, CYCLIC
     Route: 040
     Dates: start: 20100215
  9. FLUOROURACIL [Suspect]
     Dosage: 2020 MG, TOTAL DOSE
     Route: 042
     Dates: start: 20100308
  10. LEUCOVORIN CALCIUM [Suspect]
     Indication: GASTRIC CANCER
     Dosage: 800 MG, CYCLIC
     Route: 042
     Dates: start: 20091228

REACTIONS (1)
  - CHEST PAIN [None]
